FAERS Safety Report 21122377 (Version 2)
Quarter: 2022Q3

REPORT INFORMATION
  Report Type: Spontaneous
  Country: US (occurrence: US)
  Receive Date: 20220723
  Receipt Date: 20220729
  Transmission Date: 20221026
  Serious: Yes (Life-Threatening)
  Sender: FDA-Public Use
  Company Number: US-drreddys-LIT/USA/22/0152527

PATIENT
  Age: 70 Year
  Sex: Male

DRUGS (3)
  1. PRIMIDONE [Suspect]
     Active Substance: PRIMIDONE
     Indication: Metal poisoning
  2. PRIMIDONE [Suspect]
     Active Substance: PRIMIDONE
     Indication: Movement disorder
  3. ACETYLCYSTEINE [Suspect]
     Active Substance: ACETYLCYSTEINE
     Indication: Chelation therapy

REACTIONS (1)
  - Drug ineffective [Unknown]
